FAERS Safety Report 7700846-8 (Version None)
Quarter: 2011Q3

REPORT INFORMATION
  Report Type: 
  Country: None (occurrence: None)
  Receive Date: 20110822
  Receipt Date: 20110818
  Transmission Date: 20111222
  Serious: Yes (Hospitalization)
  Sender: FDA-Public Use
  Company Number: DE-ROCHE-797576

PATIENT
  Sex: Male
  Weight: 134 kg

DRUGS (13)
  1. ASPIRIN [Concomitant]
     Route: 048
  2. SIMAVASTATIN [Concomitant]
     Route: 048
  3. AMLODIPINE [Concomitant]
     Indication: HYPERTENSION
     Route: 048
  4. GLYBURIDE [Concomitant]
     Route: 048
  5. LASIX [Concomitant]
     Indication: HYPERTENSION
     Route: 048
  6. METFORMIN HYDROCHLORIDE [Concomitant]
     Route: 048
  7. BISOPROLOL FUMARATE [Concomitant]
     Indication: HYPERTENSION
     Route: 048
  8. CYNT [Concomitant]
     Indication: HYPERTENSION
     Route: 048
  9. RAMIPRIL [Concomitant]
     Indication: HYPERTENSION
     Route: 048
  10. ESIDRIX [Concomitant]
     Indication: HYPERTENSION
     Route: 048
  11. OXALIPLATIN [Suspect]
     Indication: RECTAL CANCER
     Route: 042
  12. PANTOPRAZOLE [Concomitant]
     Route: 048
  13. CAPECITABINE [Suspect]
     Indication: RECTAL CANCER
     Route: 048

REACTIONS (2)
  - WOUND INFECTION [None]
  - IMPAIRED HEALING [None]
